FAERS Safety Report 16166919 (Version 3)
Quarter: 2020Q3

REPORT INFORMATION
  Report Type: Report from Study
  Country: FR (occurrence: FR)
  Receive Date: 20190408
  Receipt Date: 20200907
  Transmission Date: 20201102
  Serious: Yes (Hospitalization)
  Sender: FDA-Public Use
  Company Number: FR-ROCHE-2297890

PATIENT
  Age: 27 Year
  Sex: Female
  Weight: 54.5 kg

DRUGS (4)
  1. VEMURAFENIB. [Suspect]
     Active Substance: VEMURAFENIB
     Indication: NEOPLASM MALIGNANT
     Dosage: CUMULATIVE DOSE, SINCE THE FIRST ADMINISTRATION WAS 15360 MG?ON 02/APR/2019, RECENT DOSE OF VEMURAFE
     Route: 048
     Dates: start: 20190326
  2. DOLIPRANE [Concomitant]
     Active Substance: ACETAMINOPHEN
     Indication: HEADACHE
  3. LOPERAMIDE [Concomitant]
     Active Substance: LOPERAMIDE
     Indication: DIARRHOEA
  4. FERROSTRANE [Concomitant]
     Active Substance: SODIUM FEREDETATE

REACTIONS (1)
  - Rash pruritic [Recovered/Resolved]

NARRATIVE: CASE EVENT DATE: 20190402
